FAERS Safety Report 25462643 (Version 1)
Quarter: 2025Q2

REPORT INFORMATION
  Report Type: Other
  Country: CA (occurrence: None)
  Receive Date: 20250620
  Receipt Date: 20250620
  Transmission Date: 20250717
  Serious: Yes (Life-Threatening, Hospitalization)
  Sender: INCYTE
  Company Number: CA-002147023-NVSC2025CA096647

PATIENT
  Age: 10 Year

DRUGS (3)
  1. RUXOLITINIB [Suspect]
     Active Substance: RUXOLITINIB
     Indication: Immunosuppression
     Route: 065
  2. SIROLIMUS [Suspect]
     Active Substance: SIROLIMUS
     Indication: Immunosuppression
     Route: 065
  3. PENTAMIDINE ISETHIONATE [Suspect]
     Active Substance: PENTAMIDINE ISETHIONATE
     Indication: Antifungal prophylaxis
     Route: 065

REACTIONS (7)
  - Acute respiratory distress syndrome [Recovered/Resolved]
  - Fatigue [Recovered/Resolved]
  - Febrile bone marrow aplasia [Recovered/Resolved]
  - Hypotension [Recovered/Resolved]
  - Pneumocystis test positive [Recovered/Resolved]
  - Sepsis [Recovered/Resolved]
  - Septic shock [Recovered/Resolved]
